FAERS Safety Report 24431597 (Version 1)
Quarter: 2024Q4

REPORT INFORMATION
  Report Type: Spontaneous
  Country: US (occurrence: US)
  Receive Date: 20241014
  Receipt Date: 20241014
  Transmission Date: 20250115
  Serious: Yes (Other)
  Sender: GLENMARK
  Company Number: US-MLMSERVICE-20240923-PI202728-00217-1

PATIENT

DRUGS (26)
  1. METFORMIN HYDROCHLORIDE [Suspect]
     Active Substance: METFORMIN HYDROCHLORIDE
     Indication: Hyperglycaemia
     Dosage: UNK
     Route: 065
  2. INSULIN NOS [Concomitant]
     Active Substance: INSULIN NOS
     Indication: Hyperglycaemia
     Dosage: UNK
     Route: 042
  3. FASLODEX [Concomitant]
     Active Substance: FULVESTRANT
     Indication: Invasive ductal breast carcinoma
     Dosage: ONCE EVERY 4 WEEKS
     Route: 065
  4. FASLODEX [Concomitant]
     Active Substance: FULVESTRANT
     Indication: Metastases to liver
  5. FASLODEX [Concomitant]
     Active Substance: FULVESTRANT
     Indication: Metastases to spine
  6. FASLODEX [Concomitant]
     Active Substance: FULVESTRANT
     Indication: Metastases to lung
  7. FASLODEX [Concomitant]
     Active Substance: FULVESTRANT
     Indication: Breast cancer metastatic
  8. FASLODEX [Concomitant]
     Active Substance: FULVESTRANT
     Indication: HER2 negative breast cancer
  9. FASLODEX [Concomitant]
     Active Substance: FULVESTRANT
     Indication: Hormone receptor positive breast cancer
  10. FASLODEX [Concomitant]
     Active Substance: FULVESTRANT
     Indication: Hormone receptor positive breast cancer
  11. ZOMETA [Concomitant]
     Active Substance: ZOLEDRONIC ACID
     Indication: Hormone receptor positive breast cancer
     Dosage: ONCE EVERY 4 WEEKS
     Route: 065
  12. ZOMETA [Concomitant]
     Active Substance: ZOLEDRONIC ACID
     Indication: Invasive ductal breast carcinoma
  13. ZOMETA [Concomitant]
     Active Substance: ZOLEDRONIC ACID
     Indication: Hormone receptor positive breast cancer
  14. ZOMETA [Concomitant]
     Active Substance: ZOLEDRONIC ACID
     Indication: Breast cancer metastatic
  15. ZOMETA [Concomitant]
     Active Substance: ZOLEDRONIC ACID
     Indication: Metastases to lung
  16. ZOMETA [Concomitant]
     Active Substance: ZOLEDRONIC ACID
     Indication: HER2 negative breast cancer
  17. ZOMETA [Concomitant]
     Active Substance: ZOLEDRONIC ACID
     Indication: Metastases to spine
  18. ZOMETA [Concomitant]
     Active Substance: ZOLEDRONIC ACID
     Indication: Metastases to liver
  19. PIQRAY [Concomitant]
     Active Substance: ALPELISIB
     Indication: Invasive ductal breast carcinoma
     Dosage: 300 MILLIGRAM, QD
     Route: 065
  20. PIQRAY [Concomitant]
     Active Substance: ALPELISIB
     Indication: Metastases to lung
  21. PIQRAY [Concomitant]
     Active Substance: ALPELISIB
     Indication: Hormone receptor positive breast cancer
  22. PIQRAY [Concomitant]
     Active Substance: ALPELISIB
     Indication: Hormone receptor positive breast cancer
  23. PIQRAY [Concomitant]
     Active Substance: ALPELISIB
     Indication: Metastases to liver
  24. PIQRAY [Concomitant]
     Active Substance: ALPELISIB
     Indication: Breast cancer metastatic
  25. PIQRAY [Concomitant]
     Active Substance: ALPELISIB
     Indication: HER2 negative breast cancer
  26. PIQRAY [Concomitant]
     Active Substance: ALPELISIB
     Indication: Metastases to spine

REACTIONS (2)
  - Blood glucose abnormal [Recovered/Resolved]
  - Condition aggravated [Recovered/Resolved]
